FAERS Safety Report 10183648 (Version 1)
Quarter: 2014Q2

REPORT INFORMATION
  Report Type: Spontaneous
  Country: GB (occurrence: GB)
  Receive Date: 20140520
  Receipt Date: 20140520
  Transmission Date: 20141212
  Serious: Yes (Hospitalization)
  Sender: FDA-Public Use
  Company Number: GB-009507513-1405GBR008392

PATIENT
  Age: 28 Year
  Sex: Female
  Weight: 69.39 kg

DRUGS (3)
  1. NEXPLANON [Suspect]
     Indication: CONTRACEPTIVE IMPLANT
     Dosage: 68 MG, UNK
     Route: 051
     Dates: start: 20070829, end: 20140502
  2. CITALOPRAM [Concomitant]
  3. ACETAMINOPHEN [Concomitant]

REACTIONS (5)
  - Chest pain [Not Recovered/Not Resolved]
  - Dyspnoea [Not Recovered/Not Resolved]
  - Atelectasis [Unknown]
  - Pulmonary infarction [Unknown]
  - Pulmonary embolism [Not Recovered/Not Resolved]
